FAERS Safety Report 8338948-8 (Version None)
Quarter: 2012Q2

REPORT INFORMATION
  Report Type: 
  Country: None (occurrence: None)
  Receive Date: 20120507
  Receipt Date: 20120424
  Transmission Date: 20120825
  Serious: Yes (Disabling)
  Sender: FDA-Public Use
  Company Number: JP-BRISTOL-MYERS SQUIBB COMPANY-16524837

PATIENT
  Age: 77 Year
  Sex: Male
  Weight: 66 kg

DRUGS (14)
  1. GOSHAJINKIGAN [Concomitant]
     Dosage: GRANULES
     Dates: start: 20110917
  2. CORINAEL L [Concomitant]
     Dosage: TAB
     Dates: start: 20110917
  3. ZOLPIDEM [Concomitant]
     Dosage: TAB
     Dates: start: 20110917
  4. ASPIRIN [Concomitant]
     Dosage: TAB
     Dates: start: 20110917
  5. ABILIFY [Suspect]
     Indication: BIPOLAR I DISORDER
     Dosage: REG1:12MG:17-17SEP11,1DY REG2:24MG 18-20SEP11 3D REG3:12MG21SEP-31OCT11,41DY REG4:18MG01NOV11-ONG
     Route: 048
     Dates: start: 20110917
  6. PRANLUKAST [Concomitant]
     Dosage: CAPSULE
     Dates: start: 20110917
  7. FLIVAS [Concomitant]
     Dosage: TAB
     Dates: start: 20110917
  8. AMARYL [Concomitant]
     Dosage: TAB
     Dates: start: 20110917
  9. ZOPICOOL [Concomitant]
     Dosage: TAB
     Dates: start: 20110917
  10. JANUVIA [Concomitant]
     Dosage: TAB
     Dates: start: 20110917
  11. FLUTICASONE PROPIONATE [Concomitant]
     Dosage: INHALATION VAPOUR
     Dates: start: 20110917
  12. ROZEREM [Concomitant]
     Dosage: TAB
     Dates: start: 20110917
  13. AMLODIPINE [Concomitant]
     Dosage: ORODISPERSIBLE TAB
     Dates: start: 20110917
  14. OLOPATADINE HCL [Concomitant]
     Dosage: TAB
     Dates: start: 20110917

REACTIONS (3)
  - MUSCULAR WEAKNESS [None]
  - GAIT DISTURBANCE [None]
  - PROTEIN URINE PRESENT [None]
